FAERS Safety Report 23613877 (Version 2)
Quarter: 2024Q2

REPORT INFORMATION
  Report Type: Spontaneous
  Country: US (occurrence: None)
  Receive Date: 20240310
  Receipt Date: 20240406
  Transmission Date: 20240716
  Serious: No
  Sender: FDA-Public Use
  Company Number: 2024A050173

PATIENT
  Sex: Female

DRUGS (1)
  1. TEZEPELUMAB [Suspect]
     Active Substance: TEZEPELUMAB
     Indication: Asthma
     Dosage: UNKNOWN

REACTIONS (1)
  - Fatigue [Unknown]
